FAERS Safety Report 4273717-X (Version None)
Quarter: 2004Q1

REPORT INFORMATION
  Report Type: 
  Country: None (occurrence: None)
  Receive Date: 20040116
  Receipt Date: 20040116
  Transmission Date: 20041129
  Serious: Yes (Other)
  Sender: FDA-Public Use
  Company Number: None

PATIENT
  Age: 74 Year
  Sex: Male

DRUGS (2)
  1. MUCINEX [Suspect]
     Indication: COUGH
     Dosage: 1 BID PO
     Route: 048
     Dates: start: 20031211, end: 20031220
  2. DURATUSS [Concomitant]

REACTIONS (2)
  - CHEST DISCOMFORT [None]
  - PAIN IN EXTREMITY [None]
